FAERS Safety Report 26005061 (Version 1)
Quarter: 2025Q4

REPORT INFORMATION
  Report Type: Spontaneous
  Country: US (occurrence: US)
  Receive Date: 20251106
  Receipt Date: 20251106
  Transmission Date: 20260118
  Serious: No
  Sender: ROCHE
  Company Number: US-ROCHE-10000424734

PATIENT
  Sex: Female

DRUGS (3)
  1. XOLAIR [Suspect]
     Active Substance: OMALIZUMAB
     Indication: Idiopathic urticaria
     Route: 058
     Dates: start: 202505
  2. XOLAIR [Suspect]
     Active Substance: OMALIZUMAB
  3. DUPIXENT [Concomitant]
     Active Substance: DUPILUMAB
     Indication: Idiopathic urticaria
     Dosage: INJECT 2 PENS ON DAY 1 AND 1 PEN ON DAY 15 AND THEN 1 PEN THEREAFTER EVERY 14 DAYS.
     Route: 058
     Dates: start: 202505

REACTIONS (2)
  - Erythema [Unknown]
  - Pruritus [Unknown]
